FAERS Safety Report 5767588-X (Version None)
Quarter: 2008Q2

REPORT INFORMATION
  Report Type: 
  Country: None (occurrence: None)
  Receive Date: 20080612
  Receipt Date: 20080526
  Transmission Date: 20081010
  Serious: Yes (Hospitalization)
  Sender: FDA-Public Use
  Company Number: CA-PFIZER INC-2008045762

PATIENT
  Age: 43 Year
  Sex: Female

DRUGS (2)
  1. DEPO-MEDROL [Suspect]
  2. MARCAINE [Concomitant]

REACTIONS (1)
  - TRIGEMINAL NERVE DISORDER [None]
